FAERS Safety Report 9995536 (Version 4)
Quarter: 2014Q2

REPORT INFORMATION
  Report Type: Report from Study
  Country: JP (occurrence: JP)
  Receive Date: 20140311
  Receipt Date: 20140522
  Transmission Date: 20141212
  Serious: Yes (Death, Life-Threatening, Other)
  Sender: FDA-Public Use
  Company Number: JP-OTSUKA-JP-2014-12368

PATIENT
  Age: 75 Year
  Sex: Male
  Weight: 49.8 kg

DRUGS (9)
  1. SAMSCA [Suspect]
     Indication: OEDEMA DUE TO CARDIAC DISEASE
     Dosage: 15 MG MILLIGRAM(S), QAM
     Route: 048
     Dates: start: 20120702, end: 20120712
  2. AMIODARONE HYDROCHLORIDE [Suspect]
     Indication: ATRIAL FLUTTER
     Dosage: 150 MG MILLIGRAM(S), DAILY DOSE
     Route: 048
     Dates: start: 20120518, end: 20120716
  3. MILRILA [Suspect]
     Indication: CARDIAC FAILURE
     Dosage: 14.4 MG MILLIGRAM(S), DAILY DOSE
     Route: 041
     Dates: start: 20120629, end: 20120705
  4. OMNIPAQUE [Suspect]
     Indication: ARTERIOGRAM CORONARY
     Dosage: 350 ML MILLILITRE(S), DAILY DOSE
     Route: 042
     Dates: start: 20120712, end: 20120712
  5. HEPARIN [Concomitant]
     Indication: ATRIAL FLUTTER
     Dosage: 6 KIU IU(1000S), DAILY DOSE
     Route: 042
     Dates: start: 20120518, end: 20120806
  6. HEPARIN [Concomitant]
     Indication: DIALYSIS
  7. HEPARIN [Concomitant]
     Indication: THROMBOSIS PROPHYLAXIS
  8. DOBUTAMINE [Concomitant]
     Indication: CARDIAC FAILURE
     Dosage: 216 MG MILLIGRAM(S), DAILY DOSE
     Route: 041
     Dates: start: 20120626, end: 20120717
  9. LASIX [Concomitant]
     Indication: CARDIAC FAILURE
     Dosage: 240 MG MILLIGRAM(S), DAILY DOSE
     Route: 042
     Dates: start: 20120626, end: 20120717

REACTIONS (5)
  - Ventricular arrhythmia [Recovering/Resolving]
  - Renal failure acute [Not Recovered/Not Resolved]
  - Thirst [Recovered/Resolved]
  - Sepsis [Fatal]
  - Gastrointestinal haemorrhage [Fatal]
